FAERS Safety Report 11728631 (Version 2)
Quarter: 2015Q4

REPORT INFORMATION
  Report Type: Spontaneous
  Country: CA (occurrence: US)
  Receive Date: 20151112
  Receipt Date: 20151202
  Transmission Date: 20160304
  Serious: Yes (Hospitalization)
  Sender: FDA-Public Use
  Company Number: US-CELGENE-USA-2015110408

PATIENT
  Age: 60 Year
  Sex: Male
  Weight: 94.5 kg

DRUGS (9)
  1. ABRAXANE [Suspect]
     Active Substance: PACLITAXEL
     Route: 065
     Dates: start: 20151029
  2. NECUPARANIB [Suspect]
     Active Substance: NECUPARANIB
     Dosage: 800 MILLIGRAM
     Route: 065
     Dates: start: 20151029
  3. GEMCITABINE [Suspect]
     Active Substance: GEMCITABINE\GEMCITABINE HYDROCHLORIDE
     Indication: PANCREATIC CARCINOMA
     Route: 065
     Dates: start: 20150827
  4. GEMCITABINE [Suspect]
     Active Substance: GEMCITABINE\GEMCITABINE HYDROCHLORIDE
     Route: 065
     Dates: start: 20151029
  5. GEMCITABINE [Suspect]
     Active Substance: GEMCITABINE\GEMCITABINE HYDROCHLORIDE
     Route: 065
     Dates: start: 20150924, end: 20151008
  6. ABRAXANE [Suspect]
     Active Substance: PACLITAXEL
     Route: 065
     Dates: start: 20150924, end: 20151008
  7. NECUPARANIB [Suspect]
     Active Substance: NECUPARANIB
     Route: 065
     Dates: start: 20150924, end: 20151008
  8. NECUPARANIB [Suspect]
     Active Substance: NECUPARANIB
     Indication: PANCREATIC CARCINOMA
     Route: 065
     Dates: start: 20150827
  9. ABRAXANE [Suspect]
     Active Substance: PACLITAXEL
     Indication: PANCREATIC CARCINOMA
     Route: 065
     Dates: start: 20150827

REACTIONS (1)
  - Cholangitis [Recovered/Resolved with Sequelae]

NARRATIVE: CASE EVENT DATE: 20151018
